FAERS Safety Report 9554640 (Version 1)
Quarter: 2013Q3

REPORT INFORMATION
  Report Type: Spontaneous
  Country: US (occurrence: US)
  Receive Date: 20130925
  Receipt Date: 20130925
  Transmission Date: 20140515
  Serious: Yes (Death, Hospitalization)
  Sender: FDA-Public Use
  Company Number: US-BAXTER-2013BAX036521

PATIENT
  Age: 63 Year
  Sex: Female

DRUGS (6)
  1. DIANEAL PD2 [Suspect]
     Indication: RENAL FAILURE CHRONIC
     Dosage: 4 BAGS
     Route: 033
     Dates: start: 2011, end: 20130915
  2. DIANEAL PD2 [Suspect]
     Indication: PERITONEAL DIALYSIS
  3. DIANEAL PD2 [Suspect]
     Indication: RENAL FAILURE CHRONIC
     Dosage: 4 BAGS
     Route: 033
     Dates: start: 2011, end: 20130915
  4. DIANEAL PD2 [Suspect]
     Indication: PERITONEAL DIALYSIS
  5. DIANEAL PD2 [Suspect]
     Indication: RENAL FAILURE CHRONIC
     Dosage: 4 BAGS
     Route: 033
     Dates: start: 2011, end: 20130915
  6. DIANEAL PD2 [Suspect]
     Indication: PERITONEAL DIALYSIS

REACTIONS (3)
  - Death [Fatal]
  - Deep vein thrombosis [Unknown]
  - Gastrointestinal haemorrhage [Unknown]
